FAERS Safety Report 6356731-X (Version None)
Quarter: 2009Q3

REPORT INFORMATION
  Report Type: 
  Country: None (occurrence: None)
  Receive Date: 20090911
  Receipt Date: 20090911
  Transmission Date: 20100115
  Serious: No
  Sender: FDA-Public Use
  Company Number: None

PATIENT
  Age: 57 Year
  Sex: Female
  Weight: 56.6996 kg

DRUGS (1)
  1. ELEQUINE 500 MG RECON [Suspect]
     Indication: INFLAMMATION OF WOUND
     Dosage: 500 MG 2 DAY
     Dates: start: 20090416, end: 20090421

REACTIONS (6)
  - ARTHRALGIA [None]
  - BLOOD BLISTER [None]
  - NIGHTMARE [None]
  - TENDON DISORDER [None]
  - TENDON PAIN [None]
  - URTICARIA [None]
